FAERS Safety Report 24013931 (Version 2)
Quarter: 2024Q3

REPORT INFORMATION
  Report Type: Spontaneous
  Country: CA (occurrence: None)
  Receive Date: 20240626
  Receipt Date: 20240923
  Transmission Date: 20241016
  Serious: Yes (Other)
  Sender: ORION
  Company Number: CA-PFIZER INC-202400199645

PATIENT
  Age: 64 Year
  Sex: Female

DRUGS (17)
  1. METHOTREXATE [Suspect]
     Active Substance: METHOTREXATE
     Indication: Optic neuritis
     Dates: start: 201810, end: 202403
  2. METHOTREXATE [Suspect]
     Active Substance: METHOTREXATE
     Indication: Sjogren^s syndrome
  3. AMLO [AMLODIPINE BESILATE] [Concomitant]
     Dosage: 1 DF (2.5 MG) ?ONGOING
  4. APIXABAN [Concomitant]
     Active Substance: APIXABAN
     Dosage: ONGOING
  5. CANDESARTAN [Concomitant]
     Active Substance: CANDESARTAN
     Dosage: ONGOING
  6. LEVOTHYROXINE [Concomitant]
     Active Substance: LEVOTHYROXINE\LEVOTHYROXINE SODIUM
     Dosage: ONGOING
  7. PANTOPRAZOLE SODIUM [Concomitant]
     Active Substance: PANTOPRAZOLE SODIUM
     Dosage: ONGOING
  8. PREDNISONE [Concomitant]
     Active Substance: PREDNISONE
     Dates: start: 20230516, end: 20230518
  9. PREDNISONE [Concomitant]
     Active Substance: PREDNISONE
     Dates: start: 20230519, end: 202403
  10. PILOCARPINE [Concomitant]
     Active Substance: PILOCARPINE
     Dosage: ONGOING
  11. RENFLEXIS [Concomitant]
     Active Substance: INFLIXIMAB-ABDA
     Dates: start: 20231003
  12. RENFLEXIS [Concomitant]
     Active Substance: INFLIXIMAB-ABDA
     Dates: start: 20231017
  13. RENFLEXIS [Concomitant]
     Active Substance: INFLIXIMAB-ABDA
     Dates: start: 20231114
  14. RENFLEXIS [Concomitant]
     Active Substance: INFLIXIMAB-ABDA
     Dates: start: 20231212, end: 202403
  15. SEPTRA [Concomitant]
     Active Substance: SULFAMETHOXAZOLE\TRIMETHOPRIM
     Dosage: ONGOING
  16. TUDORZA PRESSAIR [Concomitant]
     Active Substance: ACLIDINIUM BROMIDE
     Dosage: ONGOING
  17. VENTOLIN [Concomitant]
     Active Substance: ALBUTEROL SULFATE
     Dosage: ONGOING

REACTIONS (6)
  - Haemophagocytic lymphohistiocytosis [Recovering/Resolving]
  - Pneumonia [Recovered/Resolved]
  - Delirium [Unknown]
  - Drug ineffective for unapproved indication [Unknown]
  - Product use in unapproved indication [Unknown]
  - Pyrexia [Unknown]

NARRATIVE: CASE EVENT DATE: 20221101
